FAERS Safety Report 13667069 (Version 1)
Quarter: 2017Q2

REPORT INFORMATION
  Report Type: Spontaneous
  Country: US (occurrence: US)
  Receive Date: 20170619
  Receipt Date: 20170619
  Transmission Date: 20170830
  Serious: No
  Sender: FDA-Public Use
  Company Number: US-ROCHE-1244268

PATIENT
  Age: 74 Year
  Sex: Female

DRUGS (2)
  1. XELODA [Suspect]
     Active Substance: CAPECITABINE
     Indication: COLON CANCER
     Dosage: 2000 MG IN THE MORNING AND 1500 MG IN THE EVENING
     Route: 065
     Dates: start: 20130627
  2. XELODA [Suspect]
     Active Substance: CAPECITABINE
     Indication: HEPATIC CANCER

REACTIONS (3)
  - Diarrhoea [Unknown]
  - Nausea [Recovered/Resolved]
  - Vomiting [Recovered/Resolved]

NARRATIVE: CASE EVENT DATE: 20130702
